FAERS Safety Report 5062857-3 (Version None)
Quarter: 2006Q3

REPORT INFORMATION
  Report Type: 
  Country: None (occurrence: None)
  Receive Date: 20060724
  Receipt Date: 20060706
  Transmission Date: 20061208
  Serious: Yes (Hospitalization)
  Sender: FDA-Public Use
  Company Number: ACO_0240_2006

PATIENT
  Age: 74 Year
  Sex: Female
  Weight: 54 kg

DRUGS (8)
  1. TERNELIN [Suspect]
     Indication: ROTATOR CUFF SYNDROME
     Dosage: DF PO
     Route: 048
     Dates: end: 20060614
  2. LORCAM [Suspect]
     Indication: ROTATOR CUFF SYNDROME
     Dosage: DF PO
     Route: 048
     Dates: end: 20060614
  3. SOLON [Suspect]
     Indication: ROTATOR CUFF SYNDROME
     Dosage: DF PO
     Route: 048
     Dates: end: 20060614
  4. LIPITOR [Suspect]
     Indication: HYPERLIPIDAEMIA
     Dosage: DF PO
     Route: 048
     Dates: end: 20060614
  5. CYANOCOBALAMIN [Concomitant]
  6. PANTOSIN [Concomitant]
  7. MAGNESIUM OXIDE [Concomitant]
  8. BONALON [Concomitant]

REACTIONS (5)
  - BLOOD BILIRUBIN INCREASED [None]
  - BLOOD LACTATE DEHYDROGENASE INCREASED [None]
  - GAMMA-GLUTAMYLTRANSFERASE INCREASED [None]
  - HEPATIC FUNCTION ABNORMAL [None]
  - LIVER DISORDER [None]
